FAERS Safety Report 11124423 (Version 1)
Quarter: 2015Q2

REPORT INFORMATION
  Report Type: Spontaneous
  Country: US (occurrence: US)
  Receive Date: 20150520
  Receipt Date: 20150520
  Transmission Date: 20150821
  Serious: Yes (Hospitalization)
  Sender: FDA-Public Use
  Company Number: US-BIOGENIDEC-2015BI066361

PATIENT
  Age: 65 Year
  Sex: Female

DRUGS (33)
  1. BUPROPION HCI ER (SR) [Concomitant]
  2. IBUPROFEN. [Concomitant]
     Active Substance: IBUPROFEN
  3. MAGNESIUM CARBONATE [Concomitant]
     Active Substance: MAGNESIUM CARBONATE
  4. PROAIR HFA [Concomitant]
     Active Substance: ALBUTEROL SULFATE
  5. AVONEX [Suspect]
     Active Substance: INTERFERON BETA-1A
     Indication: MULTIPLE SCLEROSIS
     Route: 030
  6. AZITHROMYCIN [Concomitant]
     Active Substance: AZITHROMYCIN ANHYDROUS
  7. CIPROFLOXACIN HCI [Concomitant]
  8. CLEAR EYES CONTACT LENS RELIEF [Concomitant]
  9. FLAXSEED [Concomitant]
     Active Substance: FLAX SEED
  10. FLUOCINONIDE. [Concomitant]
     Active Substance: FLUOCINONIDE
  11. PHENAZOPYRIDINE HCI [Concomitant]
  12. BABY ASPIRIN [Concomitant]
     Active Substance: ASPIRIN
  13. COENZYME Q10 [Concomitant]
     Active Substance: UBIDECARENONE
  14. AMOXICILLIN. [Concomitant]
     Active Substance: AMOXICILLIN
  15. CHROMIUM PICOLINATE [Concomitant]
     Active Substance: CHROMIUM PICOLINATE
  16. FLUTICASONE PROPIONATE. [Concomitant]
     Active Substance: FLUTICASONE PROPIONATE
  17. HYDROXYZINE HCI [Concomitant]
  18. VALERIAN [Concomitant]
     Active Substance: VALERIAN
  19. ELIQUIS [Concomitant]
     Active Substance: APIXABAN
  20. VITAMIN B COMPLEX [Concomitant]
     Active Substance: CYANOCOBALAMIN\DEXPANTHENOL\NIACINAMIDE\PYRIDOXINE HYDROCHLORIDE\RIBOFLAVIN 5^-PHOSPHATE SODIUM\THIAMINE HYDROCHLORIDE\VITAMIN B COMPLEX
  21. ALPRAZOLAM. [Concomitant]
     Active Substance: ALPRAZOLAM
  22. ASPIRIN. [Concomitant]
     Active Substance: ASPIRIN
  23. BIOTIIN 5000 [Concomitant]
  24. CALCIUM + D + K [Concomitant]
  25. TRAMADOL HYDROCHLORIDE. [Concomitant]
     Active Substance: TRAMADOL HYDROCHLORIDE
  26. ATENOLOL. [Concomitant]
     Active Substance: ATENOLOL
  27. VITAMIN B12 [Concomitant]
     Active Substance: CYANOCOBALAMIN
  28. D3-50 [Concomitant]
  29. DOXYCYCLINE HYCLATE. [Concomitant]
     Active Substance: DOXYCYCLINE HYCLATE
  30. LEVOTHROID [Concomitant]
     Active Substance: LEVOTHYROXINE SODIUM
  31. MYRBETRIQ [Concomitant]
     Active Substance: MIRABEGRON
  32. OMEGA 3-6-9 COMPLEX [Concomitant]
  33. CRANBERRY. [Concomitant]
     Active Substance: CRANBERRY

REACTIONS (1)
  - Cerebrovascular accident [Unknown]

NARRATIVE: CASE EVENT DATE: 20150504
